FAERS Safety Report 10570794 (Version 1)
Quarter: 2014Q4

REPORT INFORMATION
  Report Type: Spontaneous
  Country: US (occurrence: None)
  Receive Date: 20141106
  Receipt Date: 20141106
  Transmission Date: 20150529
  Serious: No
  Sender: FDA-Public Use
  Company Number: None

PATIENT
  Age: 74 Year
  Sex: Male

DRUGS (1)
  1. NEUPRO [Suspect]
     Active Substance: ROTIGOTINE
     Indication: PARKINSON^S DISEASE
     Dosage: BEGIN 2MG  JUN 2014?4 MG AUG2014
     Dates: start: 201406, end: 201408

REACTIONS (4)
  - Application site erythema [None]
  - Application site papules [None]
  - Application site irritation [None]
  - Application site acne [None]

NARRATIVE: CASE EVENT DATE: 20141023
